FAERS Safety Report 8405477-2 (Version None)
Quarter: 2012Q2

REPORT INFORMATION
  Report Type: 
  Country: None (occurrence: None)
  Receive Date: 20120604
  Receipt Date: 20120524
  Transmission Date: 20120825
  Serious: Yes (Other)
  Sender: FDA-Public Use
  Company Number: US-BIOGENIDEC-2012BI016322

PATIENT
  Sex: Female

DRUGS (4)
  1. AVONEX [Suspect]
     Indication: MULTIPLE SCLEROSIS
     Route: 030
     Dates: start: 20100624
  2. BETASERON [Concomitant]
  3. CLADRIBINE [Concomitant]
  4. COPAXONE [Concomitant]

REACTIONS (9)
  - VISUAL IMPAIRMENT [None]
  - UVEITIS [None]
  - BREAST CANCER [None]
  - MIGRAINE [None]
  - MONOCLONAL GAMMOPATHY [None]
  - UTERINE CANCER [None]
  - CONVULSION [None]
  - PHYSICAL EXAMINATION ABNORMAL [None]
  - THROMBOSIS [None]
